FAERS Safety Report 17521413 (Version 1)
Quarter: 2020Q1

REPORT INFORMATION
  Report Type: Report from Study
  Country: IN (occurrence: IN)
  Receive Date: 20200310
  Receipt Date: 20200310
  Transmission Date: 20200409
  Serious: Yes (Hospitalization)
  Sender: FDA-Public Use
  Company Number: NVSC2019IN003512

PATIENT
  Age: 47 Year
  Sex: Male

DRUGS (4)
  1. SCAPHO [Suspect]
     Active Substance: SECUKINUMAB
     Indication: PSORIASIS
     Dosage: 300 MG (VIAL)
     Route: 058
     Dates: start: 20190903
  2. SCAPHO [Suspect]
     Active Substance: SECUKINUMAB
     Dosage: 300 MG, QMO
     Route: 058
     Dates: start: 20200303
  3. SCAPHO [Suspect]
     Active Substance: SECUKINUMAB
     Dosage: 300 MG, QMO
     Route: 058
     Dates: start: 20200129
  4. SCAPHO [Suspect]
     Active Substance: SECUKINUMAB
     Dosage: 300 MG (VIAL)
     Route: 058
     Dates: start: 20191001

REACTIONS (8)
  - Loss of consciousness [Recovered/Resolved]
  - Erythema [Not Recovered/Not Resolved]
  - Fall [Recovered/Resolved]
  - Skin hypertrophy [Not Recovered/Not Resolved]
  - Skin exfoliation [Not Recovered/Not Resolved]
  - Cough [Recovered/Resolved]
  - Skin plaque [Not Recovered/Not Resolved]
  - Oxygen consumption decreased [Recovered/Resolved]

NARRATIVE: CASE EVENT DATE: 20200226
